FAERS Safety Report 11453009 (Version 2)
Quarter: 2015Q3

REPORT INFORMATION
  Report Type: Spontaneous
  Country: JP (occurrence: JP)
  Receive Date: 20150903
  Receipt Date: 20150928
  Transmission Date: 20151125
  Serious: Yes (Hospitalization)
  Sender: FDA-Public Use
  Company Number: JP-JNJFOC-20150318011

PATIENT
  Age: 37 Year
  Sex: Female

DRUGS (8)
  1. INOVELON [Concomitant]
     Active Substance: RUFINAMIDE
     Indication: EPILEPSY
     Route: 048
     Dates: start: 20140914
  2. STELARA [Suspect]
     Active Substance: USTEKINUMAB
     Indication: PSORIASIS
     Route: 058
     Dates: start: 20141218, end: 20141218
  3. STELARA [Suspect]
     Active Substance: USTEKINUMAB
     Indication: PSORIASIS
     Route: 058
     Dates: start: 201501, end: 201501
  4. EXCEGRAN [Concomitant]
     Active Substance: ZONISAMIDE
     Indication: EPILEPSY
     Route: 048
  5. SELENICA-R [Concomitant]
     Active Substance: SELENIUM
     Indication: EPILEPSY
     Route: 048
  6. STELARA [Suspect]
     Active Substance: USTEKINUMAB
     Indication: PSORIASIS
     Route: 058
     Dates: start: 2015
  7. ALEVIATIN [Concomitant]
     Active Substance: PHENYTOIN SODIUM
     Indication: EPILEPSY
     Route: 065
  8. LAMICTAL [Concomitant]
     Active Substance: LAMOTRIGINE
     Indication: EPILEPSY
     Route: 048

REACTIONS (2)
  - Epstein-Barr virus infection [Recovered/Resolved]
  - Fatigue [Unknown]

NARRATIVE: CASE EVENT DATE: 20150318
